FAERS Safety Report 19289229 (Version 1)
Quarter: 2021Q2

REPORT INFORMATION
  Report Type: Spontaneous
  Country: US (occurrence: US)
  Receive Date: 20210522
  Receipt Date: 20210522
  Transmission Date: 20210717
  Serious: Yes (Other)
  Sender: FDA-Public Use
  Company Number: US-NOVEN PHARMACEUTICALS, INC.-2021-NOV-US003430

PATIENT
  Age: 8 Year
  Sex: Female

DRUGS (1)
  1. DAYTRANA [Suspect]
     Active Substance: METHYLPHENIDATE
     Indication: ATTENTION DEFICIT HYPERACTIVITY DISORDER
     Dosage: 10MG/9 HOURS, UNKNOWN
     Route: 062
     Dates: start: 202009

REACTIONS (8)
  - Product adhesion issue [Not Recovered/Not Resolved]
  - Application site pruritus [Not Recovered/Not Resolved]
  - Adhesive tape use [Not Recovered/Not Resolved]
  - Device issue [Not Recovered/Not Resolved]
  - Device difficult to use [Recovered/Resolved]
  - Application site irritation [Not Recovered/Not Resolved]
  - Device breakage [Recovered/Resolved]
  - Application site erythema [Not Recovered/Not Resolved]

NARRATIVE: CASE EVENT DATE: 202009
